FAERS Safety Report 6061456-4 (Version None)
Quarter: 2009Q1

REPORT INFORMATION
  Report Type: 
  Country: None (occurrence: None)
  Receive Date: 20090129
  Receipt Date: 20090129
  Transmission Date: 20090719
  Serious: Yes (Hospitalization)
  Sender: FDA-Public Use
  Company Number: None

PATIENT
  Age: 14 Year
  Sex: Male
  Weight: 73 kg

DRUGS (1)
  1. DEPAKOTE ER [Suspect]
     Indication: EPILEPSY
     Dosage: 2250 MG DAILY PO
     Route: 048
     Dates: start: 20090103, end: 20090108

REACTIONS (5)
  - AMMONIA INCREASED [None]
  - BLOOD LACTIC ACID INCREASED [None]
  - CONVULSION [None]
  - MENTAL STATUS CHANGES [None]
  - VOMITING [None]
